FAERS Safety Report 18316791 (Version 7)
Quarter: 2021Q2

REPORT INFORMATION
  Report Type: Report from Study
  Country: None (occurrence: US)
  Receive Date: 20200928
  Receipt Date: 20210619
  Transmission Date: 20210717
  Serious: Yes (Other)
  Sender: FDA-Public Use
  Company Number: US-ABBVIE-20K-163-3582315-00

PATIENT
  Sex: Male
  Weight: 105.33 kg

DRUGS (9)
  1. RINVOQ [Suspect]
     Active Substance: UPADACITINIB
     Indication: RHEUMATOID ARTHRITIS
     Route: 048
     Dates: start: 201911
  2. TRAMADOL. [Concomitant]
     Active Substance: TRAMADOL
     Indication: PAIN
  3. RINVOQ [Suspect]
     Active Substance: UPADACITINIB
     Route: 048
  4. RINVOQ [Suspect]
     Active Substance: UPADACITINIB
     Route: 048
  5. TYLENOL [Concomitant]
     Active Substance: ACETAMINOPHEN
     Indication: PAIN
  6. LEVOTHYROXINE. [Concomitant]
     Active Substance: LEVOTHYROXINE
     Indication: THYROID DISORDER
  7. CARVEDILOL. [Concomitant]
     Active Substance: CARVEDILOL
     Indication: HYPERTENSION
  8. COVID?19 VACCINE NOS. [Suspect]
     Active Substance: COVID-19 VACCINE NOS
     Indication: COVID-19 IMMUNISATION
     Route: 030
  9. TESTOSTERONE. [Concomitant]
     Active Substance: TESTOSTERONE
     Indication: PROSTATIC DISORDER

REACTIONS (14)
  - Fluid retention [Recovering/Resolving]
  - Fatigue [Not Recovered/Not Resolved]
  - Nasopharyngitis [Not Recovered/Not Resolved]
  - Suspected COVID-19 [Unknown]
  - Cardiac valve disease [Recovering/Resolving]
  - Weight increased [Recovering/Resolving]
  - Osteoarthritis [Recovered/Resolved]
  - Diarrhoea [Unknown]
  - Sinusitis [Recovering/Resolving]
  - Sinus disorder [Not Recovered/Not Resolved]
  - Peripheral swelling [Recovering/Resolving]
  - Blood potassium decreased [Recovering/Resolving]
  - Rheumatoid arthritis [Recovered/Resolved]
  - Blood potassium abnormal [Recovering/Resolving]

NARRATIVE: CASE EVENT DATE: 2020
